FAERS Safety Report 21042957 (Version 2)
Quarter: 2022Q3

REPORT INFORMATION
  Report Type: Other
  Country: US (occurrence: None)
  Receive Date: 20220705
  Receipt Date: 20220713
  Transmission Date: 20221027
  Serious: Yes (Life-Threatening, Hospitalization)
  Sender: FDA-Public Use
  Company Number: US-ROCHE-3127173

PATIENT
  Sex: Female
  Weight: 79.904 kg

DRUGS (3)
  1. RITUXAN [Suspect]
     Active Substance: RITUXIMAB
     Indication: Pemphigus
     Dosage: 1GM EVERY 2 WEEKS AND THEN EVERY 6 MONTHS
     Route: 042
     Dates: start: 20210209, end: 20220112
  2. ACETAMINOPHEN [Concomitant]
     Active Substance: ACETAMINOPHEN
  3. CETIRIZINE HYDROCHLORIDE [Concomitant]
     Active Substance: CETIRIZINE HYDROCHLORIDE

REACTIONS (4)
  - Loss of consciousness [Unknown]
  - Respiratory arrest [Unknown]
  - Throat tightness [Unknown]
  - Drug hypersensitivity [Unknown]
